FAERS Safety Report 21057996 (Version 7)
Quarter: 2025Q2

REPORT INFORMATION
  Report Type: Report from Study
  Country: US (occurrence: US)
  Receive Date: 20220708
  Receipt Date: 20250609
  Transmission Date: 20250717
  Serious: Yes (Other)
  Sender: TAKEDA
  Company Number: US-TAKEDA-2022TUS045224

PATIENT
  Age: 23 Year
  Sex: Male

DRUGS (7)
  1. ADVATE [Suspect]
     Active Substance: ANTIHEMOPHILIC FACTOR, HUMAN RECOMBINANT
     Indication: Product used for unknown indication
  2. ADVATE [Suspect]
     Active Substance: ANTIHEMOPHILIC FACTOR, HUMAN RECOMBINANT
  3. ADVATE [Suspect]
     Active Substance: ANTIHEMOPHILIC FACTOR, HUMAN RECOMBINANT
  4. ADVATE [Suspect]
     Active Substance: ANTIHEMOPHILIC FACTOR, HUMAN RECOMBINANT
     Dosage: 3000 INTERNATIONAL UNIT, QOD
  5. ADVATE [Suspect]
     Active Substance: ANTIHEMOPHILIC FACTOR, HUMAN RECOMBINANT
  6. ADVATE [Suspect]
     Active Substance: ANTIHEMOPHILIC FACTOR, HUMAN RECOMBINANT
  7. ALTUVIIIO [Suspect]
     Active Substance: EFANESOCTOCOG ALFA
     Indication: Product used for unknown indication

REACTIONS (17)
  - Contusion [Unknown]
  - Haemarthrosis [Recovered/Resolved]
  - Haemorrhage [Recovering/Resolving]
  - Spontaneous haemorrhage [Recovered/Resolved]
  - Vein rupture [Unknown]
  - Head injury [Unknown]
  - Limb discomfort [Unknown]
  - Throat irritation [Unknown]
  - Bone pain [Unknown]
  - Product use issue [Unknown]
  - Chondropathy [Unknown]
  - Extra dose administered [Unknown]
  - Back pain [Unknown]
  - Intentional dose omission [Unknown]
  - Arthralgia [Unknown]
  - Limb injury [Recovered/Resolved]
  - Chest pain [Recovered/Resolved]

NARRATIVE: CASE EVENT DATE: 20210304
